FAERS Safety Report 15215733 (Version 1)
Quarter: 2018Q3

REPORT INFORMATION
  Report Type: Spontaneous
  Country: US (occurrence: US)
  Receive Date: 20180730
  Receipt Date: 20180730
  Transmission Date: 20181010
  Serious: No
  Sender: FDA-Public Use
  Company Number: US-BAYER-2018-136486

PATIENT
  Sex: Male

DRUGS (1)
  1. CLARITIN?D NOS [Suspect]
     Active Substance: LORATADINE\PSEUDOEPHEDRINE SULFATE
     Route: 065

REACTIONS (2)
  - Off label use [None]
  - Product use in unapproved indication [Unknown]
